FAERS Safety Report 7803972-8 (Version None)
Quarter: 2011Q4

REPORT INFORMATION
  Report Type: 
  Country: None (occurrence: None)
  Receive Date: 20111010
  Receipt Date: 20110928
  Transmission Date: 20120403
  Serious: No
  Sender: FDA-Public Use
  Company Number: US-JNJFOC-20111000753

PATIENT
  Sex: Female
  Weight: 68.04 kg

DRUGS (8)
  1. FENTANYL CITRATE [Suspect]
     Indication: SURGERY
     Route: 062
     Dates: start: 20110920
  2. REGLAN [Concomitant]
     Indication: NAUSEA
     Route: 048
  3. MEGESTROL ACETATE [Concomitant]
     Indication: DECREASED APPETITE
     Dosage: 30 CC
     Route: 048
  4. XELODA [Concomitant]
     Indication: NEOPLASM MALIGNANT
     Dosage: 500 MG TABLETS FIVE TIMES DAILY 14 DAYS AND 7 DAYS OFF
     Route: 048
  5. ZOFRAN [Concomitant]
     Indication: NAUSEA
     Route: 048
  6. FENTANYL [Suspect]
     Indication: NEOPLASM MALIGNANT
     Route: 062
     Dates: start: 20110920
  7. FENTANYL [Suspect]
     Indication: SURGERY
     Route: 062
     Dates: start: 20110920
  8. FENTANYL CITRATE [Suspect]
     Indication: NEOPLASM MALIGNANT
     Route: 062
     Dates: start: 20110920

REACTIONS (5)
  - VOMITING [None]
  - TREATMENT NONCOMPLIANCE [None]
  - DRUG EFFECT INCREASED [None]
  - NAUSEA [None]
  - DIZZINESS [None]
